FAERS Safety Report 7969670-5 (Version None)
Quarter: 2011Q4

REPORT INFORMATION
  Report Type: 
  Country: None (occurrence: None)
  Receive Date: 20111212
  Receipt Date: 20110926
  Transmission Date: 20120403
  Serious: Yes (Death, Other)
  Sender: FDA-Public Use
  Company Number: TR-PFIZER INC-2011299713

PATIENT
  Age: 52 Year
  Sex: Male

DRUGS (6)
  1. CARVEDILOL [Suspect]
     Dosage: UNK
     Route: 065
  2. SIMVASTATIN [Suspect]
     Dosage: UNK
     Route: 065
  3. RAMIPRIL [Suspect]
     Dosage: UNK
     Route: 065
  4. ACETYLSALICYLIC ACID SRT [Suspect]
     Dosage: UNK
     Route: 065
  5. DIPYRIDAMOLE [Suspect]
     Dosage: UNK
     Route: 065
  6. LITHIUM [Suspect]
     Dosage: UNK
     Route: 065

REACTIONS (8)
  - DRUG INTERACTION [None]
  - CONFUSIONAL STATE [None]
  - ATAXIA [None]
  - TOXICITY TO VARIOUS AGENTS [None]
  - HYPOTENSION [None]
  - ANTIPSYCHOTIC DRUG LEVEL INCREASED [None]
  - LOSS OF CONSCIOUSNESS [None]
  - BALANCE DISORDER [None]
